FAERS Safety Report 7406718-0 (Version None)
Quarter: 2011Q2

REPORT INFORMATION
  Report Type: 
  Country: None (occurrence: None)
  Receive Date: 20110406
  Receipt Date: 20110406
  Transmission Date: 20111010
  Serious: Yes (Hospitalization)
  Sender: FDA-Public Use
  Company Number: None

PATIENT
  Sex: Male
  Weight: 58 kg

DRUGS (1)
  1. REVLIMID [Suspect]
     Dosage: REVLIMID 50 MG QD PO
     Route: 048

REACTIONS (6)
  - PNEUMONIA [None]
  - FEBRILE NEUTROPENIA [None]
  - DRUG LEVEL INCREASED [None]
  - CORYNEBACTERIUM TEST POSITIVE [None]
  - LABORATORY TEST INTERFERENCE [None]
  - TREATMENT FAILURE [None]
